FAERS Safety Report 5390343-X (Version None)
Quarter: 2007Q3

REPORT INFORMATION
  Report Type: 
  Country: None (occurrence: None)
  Receive Date: 20070718
  Receipt Date: 20070712
  Transmission Date: 20080115
  Serious: Yes (Other)
  Sender: FDA-Public Use
  Company Number: US-PFIZER INC-2007033484

PATIENT
  Sex: Male
  Weight: 74.8 kg

DRUGS (1)
  1. BEXTRA [Suspect]
     Route: 048

REACTIONS (3)
  - GAIT DISTURBANCE [None]
  - MYOCARDIAL INFARCTION [None]
  - PHYSICAL DISABILITY [None]
